FAERS Safety Report 23702895 (Version 1)
Quarter: 2024Q2

REPORT INFORMATION
  Report Type: Spontaneous
  Country: ES (occurrence: ES)
  Receive Date: 20240403
  Receipt Date: 20240403
  Transmission Date: 20240716
  Serious: Yes (Other)
  Sender: FDA-Public Use
  Company Number: None

PATIENT
  Age: 61 Year
  Sex: Female

DRUGS (8)
  1. ADALIMUMAB [Suspect]
     Active Substance: ADALIMUMAB\ISOPROPYL ALCOHOL
     Indication: Crohn^s disease
     Dosage: (2906A)
     Route: 058
     Dates: start: 20190702, end: 20220311
  2. SKYRIZI [Suspect]
     Active Substance: RISANKIZUMAB-RZAA
     Indication: Crohn^s disease
     Dosage: SKYRIZI 360 MG SOLUTION FOR INJECTION IN CARTRIDGE, 1 2.4 ML CARTRIDGE AND 1 BODY INJECTOR?360 MG...
     Route: 058
     Dates: start: 20231106
  3. Esomeprazol alter [Concomitant]
     Indication: Product used for unknown indication
     Dosage: 40 MG GASTRORE-RESISTANT TABLETS EFG, 100 TABLETS (BLISTER)
     Dates: start: 20190701
  4. CALCIUM CARBONATE\CHOLECALCIFEROL [Concomitant]
     Active Substance: CALCIUM CARBONATE\CHOLECALCIFEROL
     Indication: Product used for unknown indication
     Dosage: 500 MG/ 400 IU CHEWABLE TABLETS ORANGE FLAVOR, 60 TABLETS
     Dates: start: 20210501
  5. DILTIAZEM ALTER [Concomitant]
     Indication: Product used for unknown indication
     Dosage: 1 COMP EVERY 12H 60 MG TABLETS EFG
     Dates: start: 20171001
  6. ASPIRIN [Concomitant]
     Active Substance: ASPIRIN
     Indication: Product used for unknown indication
     Dosage: ARISTO 100 MG GASTRORE-RESISTANT TABLETS, 100 TABLETS?1 COMP EVERY  24H
     Dates: start: 20200101
  7. LORAZEPAM [Concomitant]
     Active Substance: LORAZEPAM
     Indication: Product used for unknown indication
     Dosage: 1 MG ORODISPERSABLE TABLETS EFG, 25 TABLETS
     Dates: start: 20210301
  8. ATORVASTATINA ABEX [Concomitant]
     Indication: Product used for unknown indication
     Dosage: 20 MG EFG FILM-COATED TABLETS, 28 TABLETS?1 COMP EVERY  24H
     Dates: start: 20171005

REACTIONS (1)
  - Skin mass [Not Recovered/Not Resolved]

NARRATIVE: CASE EVENT DATE: 20231204
